FAERS Safety Report 12641587 (Version 1)
Quarter: 2016Q3

REPORT INFORMATION
  Report Type: Spontaneous
  Country: IN (occurrence: IN)
  Receive Date: 20160810
  Receipt Date: 20160810
  Transmission Date: 20161109
  Serious: Yes (Hospitalization)
  Sender: FDA-Public Use
  Company Number: IN-FRESENIUS KABI-FK201605245

PATIENT
  Age: 61 Year
  Sex: Female

DRUGS (3)
  1. BORTEZOMIB [Concomitant]
     Active Substance: BORTEZOMIB
     Indication: CHEMOTHERAPY
     Route: 065
  2. MELPHALAN [Concomitant]
     Active Substance: MELPHALAN
     Indication: CHEMOTHERAPY
     Route: 065
  3. DEXAMETHASONE INJECTION (MANUFACTURER UNKNOWN) [Suspect]
     Active Substance: DEXAMETHASONE
     Indication: CHEMOTHERAPY
     Route: 065

REACTIONS (3)
  - Cellulitis [Recovered/Resolved]
  - Panophthalmitis [Recovered/Resolved with Sequelae]
  - Iridocele [Recovered/Resolved with Sequelae]
